FAERS Safety Report 19216620 (Version 1)
Quarter: 2021Q2

REPORT INFORMATION
  Report Type: Spontaneous
  Country: US (occurrence: US)
  Receive Date: 20210505
  Receipt Date: 20210505
  Transmission Date: 20210717
  Serious: Yes (Disabling)
  Sender: FDA-Public Use
  Company Number: None

PATIENT
  Age: 50 Year
  Sex: Female
  Weight: 108 kg

DRUGS (8)
  1. ZYRTEC [Concomitant]
     Active Substance: CETIRIZINE HYDROCHLORIDE
  2. PEPCID [Concomitant]
     Active Substance: FAMOTIDINE
  3. VITAMIN D [Concomitant]
     Active Substance: VITAMIN D NOS
  4. SINGULAIR [Concomitant]
     Active Substance: MONTELUKAST SODIUM
  5. METOPROLOL. [Concomitant]
     Active Substance: METOPROLOL
  6. LEXAPRO [Concomitant]
     Active Substance: ESCITALOPRAM OXALATE
  7. AIMOVIG [Suspect]
     Active Substance: ERENUMAB-AOOE
     Indication: MIGRAINE PROPHYLAXIS
     Dosage: ?          QUANTITY:1 INJECTION(S);OTHER FREQUENCY:ONCE MONTHLY;OTHER ROUTE:AUTO?INJECTOR INTO THIGH OR ABDOMEN?
  8. AIMOVIG [Suspect]
     Active Substance: ERENUMAB-AOOE

REACTIONS (4)
  - Dizziness [None]
  - Pruritus [None]
  - Nausea [None]
  - Vertigo [None]

NARRATIVE: CASE EVENT DATE: 20210501
